FAERS Safety Report 5163919-2 (Version None)
Quarter: 2006Q4

REPORT INFORMATION
  Report Type: 
  Country: None (occurrence: None)
  Receive Date: 20061204
  Receipt Date: 20060831
  Transmission Date: 20070319
  Serious: No
  Sender: FDA-Public Use
  Company Number: 2006UW17208

PATIENT
  Age: 67 Year
  Sex: Male

DRUGS (3)
  1. ATENOLOL [Suspect]
     Route: 048
  2. NORVASC [Suspect]
  3. DEMAREX [Suspect]

REACTIONS (1)
  - NO ADVERSE DRUG EFFECT [None]
